FAERS Safety Report 9419252 (Version 1)
Quarter: 2013Q3

REPORT INFORMATION
  Report Type: Spontaneous
  Country: US (occurrence: US)
  Receive Date: 20130725
  Receipt Date: 20130725
  Transmission Date: 20140515
  Serious: No
  Sender: FDA-Public Use
  Company Number: US-GLAXOSMITHKLINE-A0989367A

PATIENT
  Age: 45 Year
  Sex: Female

DRUGS (2)
  1. LAMICTAL [Suspect]
     Indication: DEPRESSION
     Dosage: 100MG PER DAY
     Route: 048
     Dates: start: 201207
  2. NO CONCURRENT MEDICATION [Concomitant]

REACTIONS (11)
  - Dyspepsia [Unknown]
  - Pruritus [Unknown]
  - Urticaria [Unknown]
  - Lacrimation increased [Unknown]
  - Feeling abnormal [Unknown]
  - Agitation [Unknown]
  - Depression [Unknown]
  - Muscle twitching [Unknown]
  - Rash [Unknown]
  - Malaise [Unknown]
  - Anxiety [Unknown]
